FAERS Safety Report 4362090-4 (Version None)
Quarter: 2004Q2

REPORT INFORMATION
  Report Type: 
  Country: None (occurrence: None)
  Receive Date: 20040521
  Receipt Date: 20040507
  Transmission Date: 20050107
  Serious: Yes (Other)
  Sender: FDA-Public Use
  Company Number: 200411620JP

PATIENT
  Age: 40 Year
  Sex: Female
  Weight: 67 kg

DRUGS (3)
  1. ARAVA [Suspect]
     Indication: RHEUMATOID ARTHRITIS
     Route: 048
     Dates: start: 20040115, end: 20040408
  2. NEUROVITAN [Concomitant]
     Indication: GLOSSODYNIA
     Dosage: DOSE: 2 TABLETS
     Route: 048
     Dates: start: 20030226
  3. PREDNISOLONE [Concomitant]
     Indication: RHEUMATOID ARTHRITIS
     Route: 048

REACTIONS (4)
  - ALANINE AMINOTRANSFERASE INCREASED [None]
  - ASPARTATE AMINOTRANSFERASE INCREASED [None]
  - BLOOD LACTATE DEHYDROGENASE INCREASED [None]
  - WHITE BLOOD CELL COUNT INCREASED [None]
